FAERS Safety Report 7130448-6 (Version None)
Quarter: 2010Q4

REPORT INFORMATION
  Report Type: 
  Country: None (occurrence: None)
  Receive Date: 20101101
  Receipt Date: 20100421
  Transmission Date: 20110411
  Serious: Yes (Hospitalization)
  Sender: FDA-Public Use
  Company Number: 232172USA

PATIENT
  Sex: Male

DRUGS (2)
  1. MERCAPTOPURINE [Suspect]
     Dates: end: 20100301
  2. ULORIC [Suspect]
     Indication: GOUT
     Dosage: (40 MG)
     Dates: end: 20100301

REACTIONS (3)
  - ASTHENIA [None]
  - DYSPNOEA [None]
  - RED BLOOD CELL COUNT DECREASED [None]
